FAERS Safety Report 13887750 (Version 1)
Quarter: 2017Q3

REPORT INFORMATION
  Report Type: Spontaneous
  Country: FR (occurrence: FR)
  Receive Date: 20170821
  Receipt Date: 20170821
  Transmission Date: 20171127
  Serious: Yes (Other)
  Sender: FDA-Public Use
  Company Number: PHHY2017FR111017

PATIENT
  Age: 53 Year
  Sex: Female
  Weight: 80 kg

DRUGS (4)
  1. ZOMETA [Suspect]
     Active Substance: ZOLEDRONIC ACID
     Indication: METASTASES TO BONE
     Dosage: 4 MG, UNK
     Route: 042
     Dates: start: 20170720
  2. CARBOPLATIN. [Concomitant]
     Active Substance: CARBOPLATIN
     Indication: LUNG NEOPLASM MALIGNANT
     Dosage: UNK
     Route: 065
     Dates: start: 20170720
  3. SOLU-MEDROL [Concomitant]
     Active Substance: METHYLPREDNISOLONE SODIUM SUCCINATE
     Indication: PRODUCT USED FOR UNKNOWN INDICATION
     Route: 065
  4. ZOPHREN [Concomitant]
     Active Substance: ONDANSETRON
     Indication: PRODUCT USED FOR UNKNOWN INDICATION
     Route: 065

REACTIONS (10)
  - Speech disorder [Unknown]
  - Insomnia [Unknown]
  - Influenza [Recovered/Resolved]
  - Haemarthrosis [Recovered/Resolved]
  - Pain in extremity [Not Recovered/Not Resolved]
  - Arthritis allergic [Recovered/Resolved]
  - Oedema peripheral [Recovered/Resolved]
  - Headache [Recovered/Resolved]
  - Stress [Unknown]
  - Dry mouth [Unknown]

NARRATIVE: CASE EVENT DATE: 20170720
